FAERS Safety Report 10367820 (Version 2)
Quarter: 2014Q3

REPORT INFORMATION
  Report Type: Spontaneous
  Country: NL (occurrence: NL)
  Receive Date: 20140807
  Receipt Date: 20140811
  Transmission Date: 20150326
  Serious: Yes (Other)
  Sender: FDA-Public Use
  Company Number: NL-PFIZER INC-2014215570

PATIENT
  Age: 32 Year
  Sex: Female
  Weight: 62 kg

DRUGS (2)
  1. ETHINYLESTRADIOL/LEVONORGESTREL [Suspect]
     Active Substance: ETHINYL ESTRADIOL\LEVONORGESTREL
     Indication: CONTRACEPTION
     Dosage: 1 DF, 1X/DAY
     Dates: start: 201403, end: 201407
  2. INSULIN [Concomitant]
     Active Substance: INSULIN NOS
     Dosage: 1 DF, UNK

REACTIONS (3)
  - Hyperglycaemia [Recovering/Resolving]
  - Hypoglycaemia [Recovering/Resolving]
  - Insulin resistance [Recovering/Resolving]

NARRATIVE: CASE EVENT DATE: 201403
